FAERS Safety Report 22003699 (Version 3)
Quarter: 2023Q2

REPORT INFORMATION
  Report Type: Spontaneous
  Country: RU (occurrence: RU)
  Receive Date: 20230217
  Receipt Date: 20230630
  Transmission Date: 20230722
  Serious: No
  Sender: FDA-Public Use
  Company Number: RU-GALDERMA-RU2023001912

PATIENT

DRUGS (1)
  1. BENZOYL PEROXIDE [Suspect]
     Active Substance: BENZOYL PEROXIDE
     Indication: Acne
     Dosage: 1 DOSAGE FORM, FACE IN THE EVENING
     Route: 061
     Dates: start: 20230203, end: 20230207

REACTIONS (6)
  - Swelling of eyelid [Recovered/Resolved]
  - Application site erythema [Recovered/Resolved]
  - Dermatitis contact [Recovered/Resolved]
  - Application site pruritus [Recovered/Resolved]
  - Application site pain [Recovered/Resolved]
  - Application site swelling [Recovered/Resolved]

NARRATIVE: CASE EVENT DATE: 20230201
